FAERS Safety Report 7486764-1 (Version None)
Quarter: 2011Q2

REPORT INFORMATION
  Report Type: 
  Country: None (occurrence: None)
  Receive Date: 20110517
  Receipt Date: 20110505
  Transmission Date: 20111010
  Serious: Yes (Hospitalization, Other)
  Sender: FDA-Public Use
  Company Number: US-ELI_LILLY_AND_COMPANY-US201103007480

PATIENT
  Sex: Male
  Weight: 87.982 kg

DRUGS (14)
  1. HUMULIN 70/30 [Suspect]
     Dosage: 45 U, BID
     Route: 058
     Dates: start: 19960101
  2. HUMULIN 70/30 [Suspect]
     Dosage: 45 U, BID
     Route: 058
     Dates: start: 19960101
  3. LISINOPRIL [Concomitant]
     Dosage: 40 MG, UNK
  4. ASPIRIN [Concomitant]
     Dosage: UNK
  5. DICLOFENAC SODIUM [Concomitant]
     Dosage: UNK
  6. SIMVASTATIN [Concomitant]
     Dosage: 80 MG, UNK
  7. LYRICA [Concomitant]
     Dosage: 50 MG, UNK
  8. VITAMIN E [Concomitant]
     Dosage: UNK
  9. FUROSEMIDE [Concomitant]
     Dosage: 40 MG, UNK
  10. HUMULIN 70/30 [Suspect]
     Dosage: 45 U, EACH EVENING
     Route: 058
     Dates: start: 19960101
  11. HUMULIN 70/30 [Suspect]
     Dosage: 55 U, EACH MORNING
     Route: 058
     Dates: start: 19960101
  12. HUMULIN 70/30 [Suspect]
     Dosage: 45 U, EACH EVENING
     Route: 058
     Dates: start: 19960101
  13. PLAVIX [Concomitant]
     Dosage: UNK
  14. HUMULIN 70/30 [Suspect]
     Indication: TYPE 2 DIABETES MELLITUS
     Dosage: 55 U, EACH MORNING
     Route: 058
     Dates: start: 19960101

REACTIONS (3)
  - THROMBOSIS [None]
  - CORONARY ARTERY DISEASE [None]
  - DENTAL IMPLANTATION [None]
